FAERS Safety Report 9187905 (Version 1)
Quarter: 2013Q1

REPORT INFORMATION
  Report Type: Spontaneous
  Country: US (occurrence: US)
  Receive Date: 20130325
  Receipt Date: 20130325
  Transmission Date: 20140127
  Serious: No
  Sender: FDA-Public Use
  Company Number: US-MYLANLABS-2012S1016856

PATIENT
  Age: 66 Year
  Sex: Female
  Weight: 58.97 kg

DRUGS (1)
  1. FENTANYL TRANSDERMAL SYSTEM [Suspect]
     Indication: PAIN
     Dosage: CHANGED Q72H
     Route: 062
     Dates: start: 2009, end: 201207

REACTIONS (4)
  - Secretion discharge [Not Recovered/Not Resolved]
  - Scab [Not Recovered/Not Resolved]
  - Eye discharge [Not Recovered/Not Resolved]
  - Urine abnormality [Not Recovered/Not Resolved]
